FAERS Safety Report 4720780-5 (Version None)
Quarter: 2005Q3

REPORT INFORMATION
  Report Type: 
  Country: None (occurrence: None)
  Receive Date: 20050721
  Receipt Date: 20050714
  Transmission Date: 20060218
  Serious: Yes (Hospitalization, Disabling, Other)
  Sender: FDA-Public Use
  Company Number: BE-ABBOTT-05P-013-0305678-00

PATIENT
  Age: 26 Year
  Sex: Male

DRUGS (12)
  1. KALETRA [Suspect]
     Indication: HIV INFECTION
     Dates: start: 20020501
  2. LAMIVUDINE [Suspect]
     Indication: HIV INFECTION
     Dates: start: 20020501
  3. ZIDOVUDINE [Suspect]
     Indication: HIV INFECTION
     Dates: start: 20020501
  4. AMPHOTERICIN B [Concomitant]
     Indication: MENINGITIS CRYPTOCOCCAL
     Dosage: 0.5 MG/KG/DAY
     Route: 042
     Dates: start: 20020501
  5. AMPHOTERICIN B [Concomitant]
     Dosage: 1 MG/KG/DAY
     Route: 042
  6. METHYLPREDNISOLONE [Concomitant]
     Indication: MENINGITIS CRYPTOCOCCAL
     Route: 042
     Dates: start: 20020501
  7. METHYLPREDNISOLONE [Concomitant]
  8. METHYLPREDNISOLONE [Concomitant]
  9. FLUCONAZOLE [Concomitant]
     Indication: MENINGITIS CRYPTOCOCCAL
     Dates: start: 20020501
  10. FLUCONAZOLE [Concomitant]
     Route: 048
  11. FLUCONAZOLE [Concomitant]
     Route: 042
  12. ACETAZOLAMIDE [Concomitant]
     Indication: DRUG USE FOR UNKNOWN INDICATION

REACTIONS (11)
  - ANOREXIA [None]
  - BLINDNESS [None]
  - CRYPTOCOCCOSIS [None]
  - DEAFNESS UNILATERAL [None]
  - DIABETES INSIPIDUS [None]
  - EAR PAIN [None]
  - EYE HAEMORRHAGE [None]
  - IMMUNE RECONSTITUTION SYNDROME [None]
  - INTRACRANIAL PRESSURE INCREASED [None]
  - OPTIC NERVE DISORDER [None]
  - WEIGHT DECREASED [None]
